FAERS Safety Report 11124908 (Version 1)
Quarter: 2015Q2

REPORT INFORMATION
  Report Type: Spontaneous
  Country: CN (occurrence: CN)
  Receive Date: 20150520
  Receipt Date: 20150520
  Transmission Date: 20150821
  Serious: Yes (Other)
  Sender: FDA-Public Use
  Company Number: CN-PFIZER INC-2015167288

PATIENT
  Age: 49 Year
  Sex: Female
  Weight: 35 kg

DRUGS (5)
  1. ORNIDAZOLE [Concomitant]
     Active Substance: ORNIDAZOLE
     Indication: INFECTION
  2. AMBROXOL HYDROCHLORIDE [Concomitant]
     Active Substance: AMBROXOL HYDROCHLORIDE
     Indication: PRODUCTIVE COUGH
  3. PIDOTIMOD [Concomitant]
     Active Substance: PIDOTIMOD
  4. TAZOCIN [Suspect]
     Active Substance: PIPERACILLIN SODIUM\TAZOBACTAM SODIUM
     Indication: INFECTION
     Dosage: 4.5 G, 3X/DAY
     Route: 041
     Dates: start: 20141007, end: 20141007
  5. MYRTOL [Concomitant]
     Active Substance: HERBALS
     Indication: PRODUCTIVE COUGH

REACTIONS (6)
  - Cyanosis [Recovered/Resolved]
  - Rash pruritic [Recovered/Resolved]
  - Hypersensitivity [Recovered/Resolved]
  - Asthma [Recovered/Resolved]
  - Dysphonia [Recovered/Resolved]
  - Nodule [Recovered/Resolved]

NARRATIVE: CASE EVENT DATE: 20141007
